FAERS Safety Report 8902404 (Version 1)
Quarter: 2012Q4

REPORT INFORMATION
  Report Type: 
  Country: GR (occurrence: GR)
  Receive Date: 20121112
  Receipt Date: 20121112
  Transmission Date: 20130627
  Serious: Yes (Other)
  Sender: FDA-Public Use
  Company Number: GR-ASTRAZENECA-2012SE84260

PATIENT
  Age: 60 Year
  Sex: Male

DRUGS (4)
  1. BRILIQUE [Suspect]
     Indication: ACUTE CORONARY SYNDROME
     Route: 048
     Dates: start: 20121010
  2. LOPRESOR [Concomitant]
     Indication: HYPERTENSION
     Route: 048
  3. CRESTOR [Concomitant]
     Indication: HYPERCHOLESTEROLAEMIA
     Route: 048
  4. SALOSPIR [Concomitant]
     Indication: ACUTE CORONARY SYNDROME
     Route: 048

REACTIONS (1)
  - Vascular pseudoaneurysm [Not Recovered/Not Resolved]
